FAERS Safety Report 7900588-X (Version None)
Quarter: 2011Q4

REPORT INFORMATION
  Report Type: 
  Country: None (occurrence: None)
  Receive Date: 20111108
  Receipt Date: 20111101
  Transmission Date: 20120403
  Serious: Yes (Hospitalization, Other)
  Sender: FDA-Public Use
  Company Number: GB-US-EMD SERONO, INC.-7093384

PATIENT
  Sex: Female

DRUGS (2)
  1. SAIZEN [Suspect]
     Dates: start: 20111014
  2. SAIZEN [Suspect]
     Indication: PRODUCT USED FOR UNKNOWN INDICATION
     Route: 058
     Dates: start: 20090503

REACTIONS (3)
  - CEREBROVASCULAR ACCIDENT [None]
  - EPILEPSY [None]
  - FALL [None]
